FAERS Safety Report 5473180-7 (Version None)
Quarter: 2007Q4

REPORT INFORMATION
  Report Type: 
  Country: None (occurrence: None)
  Receive Date: 20071001
  Receipt Date: 20070921
  Transmission Date: 20080405
  Serious: Yes (Hospitalization)
  Sender: FDA-Public Use
  Company Number: JP-MERCK-0709USA02276

PATIENT
  Age: 53 Year
  Sex: Female

DRUGS (5)
  1. ZETIA [Suspect]
     Indication: HYPERCHOLESTEROLAEMIA
     Route: 048
     Dates: start: 20070911
  2. AMLODIPINE BESYLATE [Concomitant]
     Route: 065
  3. ETIZOLAM [Concomitant]
     Route: 065
  4. LOXOPROFEN SODIUM [Concomitant]
     Route: 065
  5. PROBUCOL [Suspect]
     Route: 065

REACTIONS (1)
  - LOSS OF CONSCIOUSNESS [None]
